FAERS Safety Report 9572182 (Version 1)
Quarter: 2013Q4

REPORT INFORMATION
  Report Type: Spontaneous
  Country: CN (occurrence: CN)
  Receive Date: 20131001
  Receipt Date: 20131001
  Transmission Date: 20140711
  Serious: Yes (Hospitalization)
  Sender: FDA-Public Use
  Company Number: CN-PFIZER INC-2013277525

PATIENT
  Age: 11 Year
  Sex: Female

DRUGS (4)
  1. ADRIAMYCIN [Suspect]
     Dosage: UNK
     Dates: start: 20120213, end: 20120303
  2. HOLOXAN [Suspect]
     Dosage: 2 G, 1X/DAY
     Route: 041
     Dates: start: 20120213, end: 20120217
  3. HOLOXAN [Suspect]
     Dosage: UNK
     Dates: start: 20120213, end: 20120303
  4. CISPLATIN [Suspect]
     Dosage: UNK
     Dates: start: 20120213, end: 20120303

REACTIONS (3)
  - Bone marrow failure [Recovering/Resolving]
  - Liver disorder [Recovering/Resolving]
  - White blood cell count decreased [Recovering/Resolving]
